FAERS Safety Report 11387547 (Version 1)
Quarter: 2015Q3

REPORT INFORMATION
  Report Type: Report from Study
  Country: RS (occurrence: RS)
  Receive Date: 20150817
  Receipt Date: 20150817
  Transmission Date: 20151125
  Serious: Yes (Hospitalization)
  Sender: FDA-Public Use
  Company Number: RS-CELGENE-308-21880-11113247

PATIENT
  Age: 63 Year
  Sex: Female
  Weight: 70 kg

DRUGS (20)
  1. LANZUL S [Concomitant]
     Indication: PROPHYLAXIS
     Dosage: 2.5 MILLIGRAM
     Route: 048
     Dates: start: 20111112, end: 20111118
  2. SUPPOSITORIO GLICEROLI [Concomitant]
     Indication: CONSTIPATION
     Dosage: 2 SUPPOSITORIES
     Route: 054
     Dates: start: 20111122, end: 20111122
  3. ASPIRIN PROTECT [Concomitant]
     Active Substance: ASPIRIN
     Indication: ANTIPLATELET THERAPY
  4. ACTRAPID [Concomitant]
     Active Substance: INSULIN HUMAN
     Indication: HYPERGLYCAEMIA
     Route: 058
     Dates: start: 20111121, end: 20111122
  5. RANITIDINE [Concomitant]
     Active Substance: RANITIDINE\RANITIDINE HYDROCHLORIDE
     Route: 041
     Dates: start: 20111124, end: 20111124
  6. PRINORM [Concomitant]
     Indication: HYPERTENSION
     Route: 048
     Dates: start: 2010
  7. CHOLIPAM [Concomitant]
     Indication: HYPERCHOLESTEROLAEMIA
     Route: 048
     Dates: start: 2010
  8. MAROCIN [Concomitant]
     Indication: ANTIBIOTIC PROPHYLAXIS
     Dosage: 1425 IU (INTERNATIONAL UNIT)
     Route: 048
     Dates: start: 20111112, end: 20111118
  9. REVLIMID [Suspect]
     Active Substance: LENALIDOMIDE
     Indication: PLASMA CELL MYELOMA
     Route: 048
     Dates: start: 20111114, end: 20111204
  10. ACICLOVIR [Concomitant]
     Active Substance: ACYCLOVIR
     Indication: ANTIVIRAL PROPHYLAXIS
     Dosage: 15 MILLIGRAM
     Route: 048
     Dates: start: 20111112, end: 20111118
  11. TRITACE [Concomitant]
     Active Substance: RAMIPRIL
     Indication: HYPERTENSION
     Route: 048
     Dates: start: 20111118, end: 20111124
  12. REVLIMID [Suspect]
     Active Substance: LENALIDOMIDE
     Route: 048
     Dates: start: 20111220, end: 20120608
  13. DEXAMETHASONE. [Suspect]
     Active Substance: DEXAMETHASONE
     Route: 065
     Dates: end: 20120604
  14. GLUFORMIN [Concomitant]
     Active Substance: METFORMIN HYDROCHLORIDE
     Indication: DIABETES MELLITUS
     Route: 048
     Dates: start: 2011
  15. PRILAZID [Concomitant]
     Active Substance: CILAZAPRIL MONOHYDRATE
     Indication: HYPERTENSION
     Route: 048
     Dates: start: 20111118
  16. DEXAMETHASONE. [Suspect]
     Active Substance: DEXAMETHASONE
     Indication: PLASMA CELL MYELOMA
     Route: 065
     Dates: start: 20111114, end: 20111205
  17. RANITIDINE [Concomitant]
     Active Substance: RANITIDINE\RANITIDINE HYDROCHLORIDE
     Route: 048
     Dates: start: 20111128, end: 20111219
  18. ASPIRIN PROTECT [Concomitant]
     Active Substance: ASPIRIN
     Indication: ANTICOAGULANT THERAPY
     Dosage: 500 MILLIGRAM
     Route: 048
     Dates: start: 20111112, end: 20111118
  19. FRAXIPARINE [Concomitant]
     Active Substance: NADROPARIN CALCIUM
     Indication: THROMBOSIS PROPHYLAXIS
     Route: 058
     Dates: start: 20111121, end: 20111125
  20. RANITIDINE [Concomitant]
     Active Substance: RANITIDINE\RANITIDINE HYDROCHLORIDE
     Indication: PROPHYLAXIS
     Route: 041
     Dates: start: 20111118, end: 20111123

REACTIONS (1)
  - Cytokine release syndrome [Recovered/Resolved]

NARRATIVE: CASE EVENT DATE: 20111118
